FAERS Safety Report 7241685-4 (Version None)
Quarter: 2011Q1

REPORT INFORMATION
  Report Type: 
  Country: None (occurrence: None)
  Receive Date: 20110124
  Receipt Date: 20110114
  Transmission Date: 20110831
  Serious: Yes (Other)
  Sender: FDA-Public Use
  Company Number: PHHY2011US03483

PATIENT
  Sex: Female

DRUGS (4)
  1. GLEEVEC [Suspect]
     Dosage: 400 MG, QD
     Route: 048
  2. IRON [Concomitant]
     Dosage: 325 MG, UNK
  3. LISINOPRIL [Concomitant]
     Dosage: 2.5 MG, UNK
  4. CALCIUM [Concomitant]

REACTIONS (4)
  - ABDOMINAL TENDERNESS [None]
  - FOOT FRACTURE [None]
  - ALOPECIA [None]
  - OEDEMA PERIPHERAL [None]
